FAERS Safety Report 8525533-8 (Version None)
Quarter: 2012Q3

REPORT INFORMATION
  Report Type: 
  Country: None (occurrence: None)
  Receive Date: 20120720
  Receipt Date: 20120712
  Transmission Date: 20120928
  Serious: No
  Sender: FDA-Public Use
  Company Number: US-B.I. PHARMACEUTICALS,INC./RIDGEFIELD-2012-BP-15591BP

PATIENT
  Sex: Male

DRUGS (8)
  1. SIMVASTATIN [Concomitant]
     Indication: BLOOD CHOLESTEROL INCREASED
  2. JANUMET [Concomitant]
     Indication: DIABETES MELLITUS
  3. LOSARTAN POTASSIUM [Concomitant]
     Indication: HYPERTENSION
     Dosage: 25 MG
     Route: 048
  4. ZANTAC [Suspect]
  5. ZANTAC [Suspect]
     Indication: DYSPEPSIA
     Dosage: 150 MG
     Route: 048
     Dates: start: 20120711
  6. ALDOMET [Concomitant]
     Indication: HYPERTENSION
     Dosage: 250 MG
     Route: 048
  7. AVODART [Concomitant]
  8. PLAVIX [Concomitant]
     Indication: CARDIAC DISORDER

REACTIONS (1)
  - HYPOTENSION [None]
